FAERS Safety Report 9633844 (Version 2)
Quarter: 2013Q4

REPORT INFORMATION
  Report Type: Spontaneous
  Country: IT (occurrence: IT)
  Receive Date: 20131021
  Receipt Date: 20131021
  Transmission Date: 20140711
  Serious: Yes (Other)
  Sender: FDA-Public Use
  Company Number: IT-ASTRAZENECA-2012SE93942

PATIENT
  Age: 66 Year
  Sex: Female
  Weight: 70 kg

DRUGS (2)
  1. TENORETIC [Suspect]
     Indication: HYPERTENSION
     Dosage: 50+12.5 MG ONCE DAILY
     Route: 048
     Dates: start: 20090101, end: 20121207
  2. TENORETIC [Suspect]
     Indication: TACHYCARDIA
     Dosage: 50+12.5 MG ONCE DAILY
     Route: 048
     Dates: start: 20090101, end: 20121207

REACTIONS (1)
  - Asthmatic crisis [Recovered/Resolved]
